FAERS Safety Report 15966930 (Version 2)
Quarter: 2020Q3

REPORT INFORMATION
  Report Type: Report from Study
  Country: DE (occurrence: DE)
  Receive Date: 20190215
  Receipt Date: 20200810
  Transmission Date: 20201102
  Serious: Yes (Hospitalization)
  Sender: FDA-Public Use
  Company Number: DE-MYLANLABS-2019M1012878

PATIENT
  Sex: Male
  Weight: 84 kg

DRUGS (12)
  1. MOXONIDINE [Suspect]
     Active Substance: MOXONIDINE
     Indication: HYPERTENSION
     Dosage: 0.2 MILLIGRAM, QD(DAILY DOSE: 0.2 MG MILLIGRAM(S) EVERY DAY)
     Route: 048
  2. VOTRIENT [Suspect]
     Active Substance: PAZOPANIB HYDROCHLORIDE
     Indication: METASTATIC RENAL CELL CARCINOMA
     Dosage: 800 MILLIGRAM, QD
     Route: 048
     Dates: start: 20170619, end: 20170908
  3. LOPERAMID [Concomitant]
     Active Substance: LOPERAMIDE
     Indication: DIARRHOEA
     Dosage: 2 MILLIGRAM, PRN
     Route: 048
     Dates: start: 20170622
  4. PANTOPRAZOL                        /01263204/ [Concomitant]
     Active Substance: PANTOPRAZOLE SODIUM
     Indication: PROPHYLAXIS
     Dosage: UNK
  5. RAMIPRIL. [Concomitant]
     Active Substance: RAMIPRIL
     Indication: HYPERTENSION
  6. KALINOR                            /00031402/ [Concomitant]
     Active Substance: POTASSIUM CHLORIDE
     Indication: ATRIAL FIBRILLATION
     Dosage: 3 UNK, QD (UNK UNK, TID)
     Route: 048
     Dates: start: 201707
  7. LOPERAMID [Concomitant]
     Active Substance: LOPERAMIDE
     Indication: PROPHYLAXIS
  8. BISOPROLOL [Suspect]
     Active Substance: BISOPROLOL
     Indication: HYPERTENSION
     Dosage: 2.5 MILLIGRAM, QD
     Route: 048
  9. CETIRIZIN [Concomitant]
     Active Substance: CETIRIZINE HYDROCHLORIDE
     Indication: PRODUCT USED FOR UNKNOWN INDICATION
     Dosage: 10 MILLIGRAM, QD
     Dates: start: 20171206
  10. RAMIPRIL. [Concomitant]
     Active Substance: RAMIPRIL
     Indication: SINUS BRADYCARDIA
     Dosage: 5 MILLIGRAM, QD
     Route: 048
  11. ELIQUIS [Concomitant]
     Active Substance: APIXABAN
     Indication: ATRIAL FIBRILLATION
     Dosage: 5 MILLIGRAM, QD(2.5 MG, BID)
     Route: 048
     Dates: start: 20170829
  12. FUROSEMID                          /00032601/ [Concomitant]
     Active Substance: FUROSEMIDE
     Indication: HYPERTENSION
     Dosage: 400 MILLIGRAM, QD
     Route: 048

REACTIONS (5)
  - Thrombosis [Recovered/Resolved]
  - Sinus bradycardia [Recovering/Resolving]
  - Blood pressure increased [Recovered/Resolved]
  - Peripheral artery occlusion [Recovered/Resolved]
  - Peripheral embolism [Recovered/Resolved]

NARRATIVE: CASE EVENT DATE: 20170708
